FAERS Safety Report 22531950 (Version 3)
Quarter: 2023Q2

REPORT INFORMATION
  Report Type: Spontaneous
  Country: CN (occurrence: CN)
  Receive Date: 20230607
  Receipt Date: 20230623
  Transmission Date: 20230721
  Serious: Yes (Life-Threatening, Hospitalization, Other)
  Sender: FDA-Public Use
  Company Number: CN-Merck Healthcare KGaA-9405615

PATIENT
  Age: 58 Year
  Sex: Male

DRUGS (7)
  1. ERBITUX [Suspect]
     Active Substance: CETUXIMAB
     Indication: Head and neck cancer
     Dosage: UNK UNK, 2 CYCLES
     Route: 065
  2. ERBITUX [Suspect]
     Active Substance: CETUXIMAB
     Dosage: UNK, UNKNOWN
     Route: 065
     Dates: start: 20230505
  3. TAXOTERE [Suspect]
     Active Substance: DOCETAXEL
     Indication: Head and neck cancer
     Dosage: UNK, OTHER, 2 CYCLES
     Route: 065
  4. PLATINOL [Suspect]
     Active Substance: CISPLATIN
     Indication: Head and neck cancer
     Dosage: UNK, OTHER, 2 CYCLES
     Route: 065
  5. FLUOROURACIL [Suspect]
     Active Substance: FLUOROURACIL
     Indication: Head and neck cancer
     Dosage: UNK, OTHER, 2 CYCLES
     Route: 065
  6. DEXAMETHASONE [Concomitant]
     Active Substance: DEXAMETHASONE
     Indication: Premedication
     Dosage: UNK, UNKNOWN
     Route: 065
  7. DIPHENHYDRAMINE [Concomitant]
     Active Substance: DIPHENHYDRAMINE
     Indication: Premedication
     Dosage: UNK, UNKNOWN
     Route: 065

REACTIONS (7)
  - Respiratory failure [Recovering/Resolving]
  - Hypoxia [Unknown]
  - Myelosuppression [Unknown]
  - Hyponatraemia [Unknown]
  - Hypokalaemia [Unknown]
  - Infection [Unknown]
  - Mouth ulceration [Unknown]
